FAERS Safety Report 20645242 (Version 4)
Quarter: 2022Q2

REPORT INFORMATION
  Report Type: Spontaneous
  Country: US (occurrence: US)
  Receive Date: 20220328
  Receipt Date: 20220419
  Transmission Date: 20220721
  Serious: Yes (Other)
  Sender: FDA-Public Use
  Company Number: US-ALXN-A202203735

PATIENT
  Sex: Female

DRUGS (1)
  1. SOLIRIS [Suspect]
     Active Substance: ECULIZUMAB
     Indication: Myasthenia gravis
     Dosage: UNK
     Route: 065

REACTIONS (6)
  - Myasthenia gravis [Unknown]
  - Thyroid disorder [Unknown]
  - Feeling abnormal [Unknown]
  - Muscular weakness [Unknown]
  - Therapy non-responder [Unknown]
  - Fatigue [Unknown]
